FAERS Safety Report 6882383-6 (Version None)
Quarter: 2010Q3

REPORT INFORMATION
  Report Type: 
  Country: None (occurrence: None)
  Receive Date: 20100729
  Receipt Date: 20100720
  Transmission Date: 20110219
  Serious: Yes (Hospitalization)
  Sender: FDA-Public Use
  Company Number: DE-SANOFI-AVENTIS-2010SA042473

PATIENT
  Age: 32 Year
  Sex: Female

DRUGS (4)
  1. TAXOTERE [Suspect]
     Route: 041
     Dates: start: 20100226, end: 20100226
  2. TAXOTERE [Suspect]
     Route: 041
     Dates: start: 20100617, end: 20100617
  3. TRASTUZUMAB [Suspect]
     Route: 041
     Dates: start: 20100226, end: 20100226
  4. TRASTUZUMAB [Suspect]
     Route: 041
     Dates: start: 20100617, end: 20100617

REACTIONS (2)
  - LEUKOCYTOCLASTIC VASCULITIS [None]
  - PLEURAL EFFUSION [None]
